FAERS Safety Report 23467763 (Version 1)
Quarter: 2024Q1

REPORT INFORMATION
  Report Type: Report from Study
  Country: NL (occurrence: NL)
  Receive Date: 20240201
  Receipt Date: 20240201
  Transmission Date: 20240410
  Serious: Yes (Death)
  Sender: FDA-Public Use
  Company Number: NL-VER-202400014

PATIENT
  Sex: Male

DRUGS (1)
  1. TRIPTORELIN PAMOATE [Suspect]
     Active Substance: TRIPTORELIN PAMOATE
     Indication: Product used for unknown indication
     Dosage: 22.5MG SOLV 2ML (1ST) 1.00 X PER 24 WEEKS. ?STRENGTH: 22.5 MILLIGRAM
     Route: 030

REACTIONS (1)
  - Death [Fatal]
